FAERS Safety Report 4670499-4 (Version None)
Quarter: 2005Q2

REPORT INFORMATION
  Report Type: 
  Country: None (occurrence: None)
  Receive Date: 20050523
  Receipt Date: 20050222
  Transmission Date: 20051028
  Serious: Yes (Death, Hospitalization)
  Sender: FDA-Public Use
  Company Number: US-MERCK-0502USA03179

PATIENT
  Age: 59 Year
  Sex: Female
  Weight: 54 kg

DRUGS (5)
  1. VIOXX [Suspect]
     Indication: RHEUMATOID ARTHRITIS
     Route: 048
     Dates: start: 20011101, end: 20021226
  2. TOPROL-XL [Concomitant]
     Indication: HYPERTENSION
     Route: 065
     Dates: start: 19990302, end: 20020318
  3. ACCUPRIL [Concomitant]
     Indication: HYPERTENSION
     Route: 065
     Dates: start: 20010426, end: 20021228
  4. ASPIRIN [Concomitant]
     Route: 065
  5. [THERAPY UNSPECIFIED] [Concomitant]
     Route: 065

REACTIONS (8)
  - ACUTE MYOCARDIAL INFARCTION [None]
  - ANOXIC ENCEPHALOPATHY [None]
  - ATRIOVENTRICULAR BLOCK COMPLETE [None]
  - CORONARY ARTERY DISEASE [None]
  - ELECTROMECHANICAL DISSOCIATION [None]
  - HYPERCHOLESTEROLAEMIA [None]
  - SUDDEN CARDIAC DEATH [None]
  - VENTRICULAR FIBRILLATION [None]
